FAERS Safety Report 6648547-1 (Version None)
Quarter: 2010Q1

REPORT INFORMATION
  Report Type: 
  Country: None (occurrence: None)
  Receive Date: 20100319
  Receipt Date: 20100303
  Transmission Date: 20100710
  Serious: Yes (Hospitalization)
  Sender: FDA-Public Use
  Company Number: 2010AP000363

PATIENT
  Age: 28 Year
  Sex: Male

DRUGS (3)
  1. LORATADINE [Suspect]
     Indication: SKIN DISORDER
     Dosage: 10 MG;TAB;PO;QD ; 10 MG;TAB;PO ; 10 MG;QD PO
     Route: 048
     Dates: start: 20091213, end: 20091220
  2. LORATADINE [Suspect]
     Indication: SKIN DISORDER
     Dosage: 10 MG;TAB;PO;QD ; 10 MG;TAB;PO ; 10 MG;QD PO
     Route: 048
     Dates: start: 20091213
  3. LORATADINE [Suspect]
     Indication: SKIN DISORDER
     Dosage: 10 MG;TAB;PO;QD ; 10 MG;TAB;PO ; 10 MG;QD PO
     Route: 048
     Dates: start: 20091227

REACTIONS (4)
  - HYPOAESTHESIA [None]
  - INJURY [None]
  - SENSORY LOSS [None]
  - STRESS [None]
